FAERS Safety Report 6670288-5 (Version None)
Quarter: 2010Q2

REPORT INFORMATION
  Report Type: 
  Country: None (occurrence: None)
  Receive Date: 20100405
  Receipt Date: 20100319
  Transmission Date: 20101027
  Serious: Yes (Hospitalization, Other)
  Sender: FDA-Public Use
  Company Number: 2010AL001552

PATIENT
  Age: 73 Year
  Sex: Male

DRUGS (4)
  1. CITALOPRAM HYDROBROMIDE [Suspect]
     Indication: MENTAL DISORDER
     Dosage: 30 MG; QD;
  2. DIAZEPAM [Suspect]
     Indication: MENTAL DISORDER
     Dosage: 2.5 MG; TID;
  3. BUSPIRONE HYDROCHLORIDE TABLETS, USP [Suspect]
     Indication: DRUG USE FOR UNKNOWN INDICATION
     Dosage: 5 MG; BID;
  4. ZOPLICONE [Concomitant]

REACTIONS (11)
  - AGGRESSION [None]
  - ANGER [None]
  - CONFUSIONAL STATE [None]
  - DRUG DEPENDENCE [None]
  - DRUG WITHDRAWAL SYNDROME [None]
  - EYE DISORDER [None]
  - FLAT AFFECT [None]
  - HALLUCINATION [None]
  - MENTAL DISORDER [None]
  - SLEEP DISORDER [None]
  - SUICIDAL IDEATION [None]
